FAERS Safety Report 7656268-1 (Version None)
Quarter: 2011Q3

REPORT INFORMATION
  Report Type: 
  Country: None (occurrence: None)
  Receive Date: 20110804
  Receipt Date: 20110730
  Transmission Date: 20111222
  Serious: Yes (Death)
  Sender: FDA-Public Use
  Company Number: EG-SANOFI-AVENTIS-2011SA048852

PATIENT
  Age: 77 Year
  Sex: Male

DRUGS (1)
  1. LANTUS [Suspect]
     Indication: DIABETES MELLITUS
     Dosage: BEGAN ON 20 UNITS A DAY THEN INCREASED (DATE NOS) TO 28 UNITS A DAY DOSE:28 UNIT(S)
     Route: 058
     Dates: start: 20100720, end: 20110501

REACTIONS (1)
  - BRAIN NEOPLASM MALIGNANT [None]
